FAERS Safety Report 8467959 (Version 3)
Quarter: 2013Q3

REPORT INFORMATION
  Report Type: Spontaneous
  Country: US (occurrence: US)
  Receive Date: 20120320
  Receipt Date: 20130703
  Transmission Date: 20140515
  Serious: No
  Sender: FDA-Public Use
  Company Number: US-CELGENEUS-163-21880-12020630

PATIENT
  Sex: Female
  Weight: 57 kg

DRUGS (6)
  1. REVLIMID [Suspect]
     Indication: CHRONIC LYMPHOCYTIC LEUKAEMIA
     Dosage: 10 MILLIGRAM
     Route: 048
     Dates: start: 20110921
  2. REVLIMID [Suspect]
     Indication: B-CELL SMALL LYMPHOCYTIC LYMPHOMA
     Dosage: 15-10MG
     Route: 048
     Dates: start: 201110
  3. REVLIMID [Suspect]
     Dosage: 5 MILLIGRAM
     Route: 048
     Dates: start: 20120107, end: 20120120
  4. REVLIMID [Suspect]
     Dosage: 5 MILLIGRAM
     Route: 048
     Dates: start: 201202
  5. LOMOTIL [Concomitant]
     Indication: DIARRHOEA
     Route: 048
  6. LOMOTIL [Concomitant]
     Indication: DIARRHOEA

REACTIONS (1)
  - Diarrhoea [Recovering/Resolving]
